FAERS Safety Report 4358262-5 (Version None)
Quarter: 2004Q2

REPORT INFORMATION
  Report Type: 
  Country: None (occurrence: None)
  Receive Date: 20040511
  Receipt Date: 20040511
  Transmission Date: 20050107
  Serious: Yes (Life-Threatening, Hospitalization)
  Sender: FDA-Public Use
  Company Number: None

PATIENT
  Age: 64 Year
  Sex: Male
  Weight: 104.3 kg

DRUGS (24)
  1. PHENYTOIN [Suspect]
  2. POTASSIUM CHLORIDE [Concomitant]
  3. ACETAMINOPHEN [Concomitant]
  4. CARVEDILOL [Concomitant]
  5. DIGOXIN [Concomitant]
  6. FUROSEMIDE [Concomitant]
  7. LISINOPRIL [Concomitant]
  8. OMEPRAZOLE [Concomitant]
  9. PHENOBARBITAL TAB [Concomitant]
  10. SERTRALINE [Concomitant]
  11. WARFARIN SODIUM [Concomitant]
  12. .. [Concomitant]
  13. TERAZOSIN HCL [Concomitant]
  14. .. [Concomitant]
  15. .. [Concomitant]
  16. .. [Concomitant]
  17. WARFARIN SODIUM [Concomitant]
  18. RABEPRAZOLE SODIUM [Concomitant]
  19. FUROSEMIDE [Concomitant]
  20. FOSINOPRIL SODIUM [Concomitant]
  21. METOPROLOL [Concomitant]
  22. DIVALPROEX SODIUM [Concomitant]
  23. OSCAL-D [Concomitant]
  24. DIVALPROEX SODIUM [Concomitant]

REACTIONS (3)
  - DIZZINESS [None]
  - DYSKINESIA [None]
  - LOSS OF CONSCIOUSNESS [None]
